FAERS Safety Report 14776189 (Version 1)
Quarter: 2018Q2

REPORT INFORMATION
  Report Type: Spontaneous
  Country: US (occurrence: US)
  Receive Date: 20180418
  Receipt Date: 20180418
  Transmission Date: 20180711
  Serious: No
  Sender: FDA-Public Use
  Company Number: PHEH2018US014321

PATIENT
  Sex: Female

DRUGS (1)
  1. AMITRIPTYLINE SANDOZ [Suspect]
     Active Substance: AMITRIPTYLINE
     Indication: PRODUCT USED FOR UNKNOWN INDICATION
     Dosage: 10 MG, UNK
     Route: 065

REACTIONS (3)
  - Vision blurred [Unknown]
  - Nausea [Unknown]
  - Dizziness [Unknown]
